FAERS Safety Report 5314625-2 (Version None)
Quarter: 2007Q2

REPORT INFORMATION
  Report Type: 
  Country: None (occurrence: None)
  Receive Date: 20070427
  Receipt Date: 20070418
  Transmission Date: 20071010
  Serious: Yes (Other)
  Sender: FDA-Public Use
  Company Number: 6032308

PATIENT
  Age: 81 Year
  Sex: Female

DRUGS (6)
  1. BISOPRODOL FUMARATE [Suspect]
     Indication: ARRHYTHMIA
     Dosage: 5 MG (5 MG, 1 IN 1 D);
     Dates: start: 20060101
  2. ROXITHROMYCIN (ROXITHROMYCIN) [Concomitant]
  3. AUGMENTIN DUO FT (AMOXICILLIN, CLAVULANTE POTASSIUM) [Concomitant]
  4. MAGMIN (MAGNESIUM ASPARTATE) [Concomitant]
  5. WARFARIN SODIUM [Concomitant]
  6. IRBESARTAN [Concomitant]

REACTIONS (4)
  - BENIGN MIDDLE EAR NEOPLASM [None]
  - DEAFNESS UNILATERAL [None]
  - PNEUMONIA [None]
  - VIRAL INFECTION [None]
